FAERS Safety Report 9379415 (Version 2)
Quarter: 2013Q3

REPORT INFORMATION
  Report Type: Spontaneous
  Country: US (occurrence: US)
  Receive Date: 20130702
  Receipt Date: 20130726
  Transmission Date: 20140515
  Serious: No
  Sender: FDA-Public Use
  Company Number: US-PFIZER INC-2013194446

PATIENT
  Age: 68 Year
  Sex: Female
  Weight: 64.85 kg

DRUGS (3)
  1. CELEBREX [Suspect]
     Indication: OSTEOARTHRITIS
     Dosage: 1 DF, 1X/DAY
  2. CELEBREX [Suspect]
     Indication: FIBROMYALGIA
  3. NEXIUM [Concomitant]
     Indication: GASTROOESOPHAGEAL REFLUX DISEASE
     Dosage: 1 DF, 3X/DAY

REACTIONS (1)
  - Stomatitis [Not Recovered/Not Resolved]
